FAERS Safety Report 5390486-0 (Version None)
Quarter: 2007Q3

REPORT INFORMATION
  Report Type: 
  Country: None (occurrence: None)
  Receive Date: 20070718
  Receipt Date: 20070523
  Transmission Date: 20080115
  Serious: No
  Sender: FDA-Public Use
  Company Number: US-KINGPHARMUSA00001-K200700637

PATIENT

DRUGS (3)
  1. LEVOXYL [Suspect]
     Indication: THYROID NEOPLASM
     Dosage: 25 MCG, QD
     Route: 048
     Dates: start: 20070501, end: 20070522
  2. LEVOXYL [Suspect]
     Indication: GOITRE
  3. PRILOSEC /00661201/ [Concomitant]
     Indication: GASTROOESOPHAGEAL REFLUX DISEASE
     Route: 048

REACTIONS (5)
  - EXTRASYSTOLES [None]
  - HEART RATE DECREASED [None]
  - HEART RATE INCREASED [None]
  - HYPOGLYCAEMIA [None]
  - PALPITATIONS [None]
